FAERS Safety Report 19788485 (Version 3)
Quarter: 2021Q4

REPORT INFORMATION
  Report Type: Spontaneous
  Country: US (occurrence: US)
  Receive Date: 20210903
  Receipt Date: 20211012
  Transmission Date: 20220303
  Serious: Yes (Other)
  Sender: FDA-Public Use
  Company Number: US-009507513-2109USA000233

PATIENT
  Age: 50 Year
  Sex: Male

DRUGS (2)
  1. KEYTRUDA [Suspect]
     Active Substance: PEMBROLIZUMAB
     Indication: Malignant melanoma stage III
     Dosage: 5 CYCLES
  2. REMICADE [Suspect]
     Active Substance: INFLIXIMAB
     Indication: Proctitis
     Dosage: UNK

REACTIONS (2)
  - Vanishing bile duct syndrome [Unknown]
  - Drug-induced liver injury [Unknown]
